FAERS Safety Report 7401308-8 (Version None)
Quarter: 2011Q2

REPORT INFORMATION
  Report Type: 
  Country: None (occurrence: None)
  Receive Date: 20110407
  Receipt Date: 20110328
  Transmission Date: 20111010
  Serious: Yes (Disabling, Other)
  Sender: FDA-Public Use
  Company Number: BR-BAYER-2011-019841

PATIENT
  Sex: Female

DRUGS (1)
  1. CIPRO [Suspect]
     Indication: URINARY TRACT INFECTION
     Dosage: 250 MG, BID
     Route: 048
     Dates: start: 20110226

REACTIONS (11)
  - DERMATITIS ALLERGIC [None]
  - APHASIA [None]
  - FEELING ABNORMAL [None]
  - NECK PAIN [None]
  - ORAL DISCOMFORT [None]
  - DYSSTASIA [None]
  - COORDINATION ABNORMAL [None]
  - PAIN IN EXTREMITY [None]
  - PYREXIA [None]
  - ASTHENIA [None]
  - DEPRESSED LEVEL OF CONSCIOUSNESS [None]
